FAERS Safety Report 22785798 (Version 5)
Quarter: 2024Q4

REPORT INFORMATION
  Report Type: Spontaneous
  Country: US (occurrence: US)
  Receive Date: 20230804
  Receipt Date: 20241230
  Transmission Date: 20250115
  Serious: Yes (Other)
  Sender: OTSUKA
  Company Number: US-OTSUKA-2023_018996

PATIENT
  Sex: Female
  Weight: 72.5 kg

DRUGS (3)
  1. ABILIFY [Suspect]
     Active Substance: ARIPIPRAZOLE
     Indication: Product used for unknown indication
     Dosage: UNK
     Route: 048
  2. ABILIFY [Suspect]
     Active Substance: ARIPIPRAZOLE
     Dosage: 2.25 MG
     Route: 065
  3. ABILIFY [Suspect]
     Active Substance: ARIPIPRAZOLE
     Dosage: 5 MG
     Route: 065

REACTIONS (27)
  - Drug dependence [Unknown]
  - Epilepsy [Unknown]
  - Dementia [Unknown]
  - Neuropathy peripheral [Unknown]
  - Diabetes mellitus [Unknown]
  - Nervous system disorder [Unknown]
  - Thyroid disorder [Unknown]
  - Frustration tolerance decreased [Unknown]
  - Post-traumatic stress disorder [Unknown]
  - Balance disorder [Unknown]
  - Psychotic disorder [Unknown]
  - Abulia [Unknown]
  - Mental disorder [Unknown]
  - Fear [Unknown]
  - Paranoia [Unknown]
  - Affect lability [Unknown]
  - Libido decreased [Unknown]
  - Asthenia [Unknown]
  - Cognitive disorder [Unknown]
  - Memory impairment [Unknown]
  - Fall [Unknown]
  - Tremor [Unknown]
  - Dizziness [Unknown]
  - Alopecia [Unknown]
  - Headache [Unknown]
  - Wrong technique in product usage process [Unknown]
  - Drug ineffective [Unknown]

NARRATIVE: CASE EVENT DATE: 20000101
